FAERS Safety Report 19278005 (Version 1)
Quarter: 2021Q2

REPORT INFORMATION
  Report Type: Spontaneous
  Country: US (occurrence: US)
  Receive Date: 20210519
  Receipt Date: 20210519
  Transmission Date: 20210717
  Serious: No
  Sender: FDA-Public Use
  Company Number: None

PATIENT
  Age: 22 Year
  Sex: Male

DRUGS (1)
  1. CBD EDIBLE [Suspect]
     Active Substance: CANNABIDIOL\HERBALS

REACTIONS (6)
  - Abnormal behaviour [None]
  - Alcohol use [None]
  - Poisoning [None]
  - Ocular hyperaemia [None]
  - Mania [None]
  - Delusion [None]

NARRATIVE: CASE EVENT DATE: 20201127
